FAERS Safety Report 24539657 (Version 1)
Quarter: 2024Q4

REPORT INFORMATION
  Report Type: Spontaneous
  Country: US (occurrence: None)
  Receive Date: 20241022
  Receipt Date: 20241022
  Transmission Date: 20250114
  Serious: Yes (Life-Threatening, Hospitalization)
  Sender: Public
  Company Number: None

PATIENT
  Age: 77 Year
  Sex: Male

DRUGS (4)
  1. PACLITAXEL [Suspect]
     Active Substance: PACLITAXEL
     Indication: Squamous cell carcinoma of lung
     Dosage: OTHER FREQUENCY : ONCE;?
     Route: 042
     Dates: start: 20240524, end: 20240524
  2. FOSAPREPITANT DIMEGLUMINE [Suspect]
     Active Substance: FOSAPREPITANT\FOSAPREPITANT DIMEGLUMINE
     Dosage: OTHER FREQUENCY : ONCE;?
     Route: 042
     Dates: start: 20240524, end: 20240524
  3. CARBOPLATIN [Suspect]
     Active Substance: CARBOPLATIN
  4. PEMBROLIZUMAB [Suspect]
     Active Substance: PEMBROLIZUMAB

REACTIONS (4)
  - Cardiac arrest [None]
  - Palpitations [None]
  - Syncope [None]
  - Bundle branch block left [None]

NARRATIVE: CASE EVENT DATE: 20240524
